FAERS Safety Report 7338094-6 (Version None)
Quarter: 2011Q1

REPORT INFORMATION
  Report Type: 
  Country: None (occurrence: None)
  Receive Date: 20110224
  Receipt Date: 20110209
  Transmission Date: 20110831
  Serious: Yes (Other)
  Sender: FDA-Public Use
  Company Number: AUR-APL-2011-00495

PATIENT
  Age: 67 Year
  Sex: Male
  Weight: 96 kg

DRUGS (3)
  1. WARFARIN SODIUM [Concomitant]
  2. BISOPROLOL FUMARATE [Suspect]
     Indication: HEART RATE ABNORMAL
     Dosage: 2.5MG
     Dates: start: 20090522, end: 20110101
  3. CARDICOR [Concomitant]

REACTIONS (3)
  - PALPITATIONS [None]
  - FEELING ABNORMAL [None]
  - TACHYCARDIA [None]
